FAERS Safety Report 8816541 (Version 1)
Quarter: 2012Q4

REPORT INFORMATION
  Report Type: Spontaneous
  Country: US (occurrence: None)
  Receive Date: 20120927
  Receipt Date: 20120927
  Transmission Date: 20130627
  Serious: Yes (Hospitalization)
  Sender: FDA-Public Use
  Company Number: 1419572

PATIENT
  Age: 21 Day
  Sex: Male
  Weight: 2.72 kg

DRUGS (1)
  1. MARCAINE [Suspect]
     Indication: REGIONAL NERVE BLOCK

REACTIONS (6)
  - Lethargy [None]
  - Gaze palsy [None]
  - Strabismus [None]
  - Altered state of consciousness [None]
  - Hypotonia [None]
  - Toxicity to various agents [None]
